FAERS Safety Report 9785070 (Version 1)
Quarter: 2013Q4

REPORT INFORMATION
  Report Type: Spontaneous
  Country: JP (occurrence: JP)
  Receive Date: 20131227
  Receipt Date: 20131227
  Transmission Date: 20140711
  Serious: No
  Sender: FDA-Public Use
  Company Number: JP-ELI_LILLY_AND_COMPANY-JP201312006854

PATIENT
  Age: 40 Year
  Sex: Female

DRUGS (14)
  1. ZYPREXA [Suspect]
     Indication: SCHIZOPHRENIA
     Route: 048
  2. NITRAZEPAM [Concomitant]
  3. ZOLPIDEM [Concomitant]
  4. NELUROLEN [Concomitant]
  5. VEGETAMIN [Concomitant]
  6. THYRADIN [Concomitant]
  7. MAGMITT [Concomitant]
  8. ZOPICLONE [Concomitant]
  9. CONTOMIN [Concomitant]
  10. CONSTAN                            /00595201/ [Concomitant]
  11. PYRETHIA                           /00033002/ [Concomitant]
  12. LEXOTAN [Concomitant]
  13. SULPIRIDE [Concomitant]
  14. RISUMIC [Concomitant]

REACTIONS (1)
  - Menstruation irregular [Unknown]
